FAERS Safety Report 19829603 (Version 1)
Quarter: 2021Q3

REPORT INFORMATION
  Report Type: Spontaneous
  Country: NL (occurrence: NL)
  Receive Date: 20210914
  Receipt Date: 20210914
  Transmission Date: 20211014
  Serious: Yes (Other)
  Sender: FDA-Public Use
  Company Number: NL-MYLANLABS-2021M1062447

PATIENT
  Age: 41 Month
  Sex: Male

DRUGS (17)
  1. ISOTRETINOIN. [Suspect]
     Active Substance: ISOTRETINOIN
     Indication: NEUROBLASTOMA
     Dosage: 160 MG/M2, OD ON 14 CONSECUTIVE DAYS
     Route: 065
  2. QARZIBA [Suspect]
     Active Substance: DINUTUXIMAB BETA
     Dosage: 20 MG/M2 GIVEN BY 8 HOUR INFUSION (MAX 16 HOURS) ON 5 CONSECUTIVE DAYS, COURSE 4
     Route: 042
  3. QARZIBA [Suspect]
     Active Substance: DINUTUXIMAB BETA
     Dosage: 20 MG/M2 GIVEN BY 8 HOUR INFUSION (MAX 16 HOURS) ON 5 CONSECUTIVE DAYS, COURSE 3
     Route: 042
  4. ISOTRETINOIN. [Suspect]
     Active Substance: ISOTRETINOIN
     Dosage: 160 MG/M2, OD ON 14 CONSECUTIVE DAYS
     Route: 065
  5. ISOTRETINOIN. [Suspect]
     Active Substance: ISOTRETINOIN
     Dosage: 160 MG/M2, OD ON 14 CONSECUTIVE DAYS
     Route: 065
  6. ISOTRETINOIN. [Suspect]
     Active Substance: ISOTRETINOIN
     Dosage: 160 MG/M2, OD ON 14 CONSECUTIVE DAYS
     Route: 065
  7. ISOTRETINOIN. [Suspect]
     Active Substance: ISOTRETINOIN
     Dosage: 160 MG/M2, OD ON 14 CONSECUTIVE DAYS
     Route: 065
  8. QARZIBA [Suspect]
     Active Substance: DINUTUXIMAB BETA
     Dosage: 20 MG/M2 GIVEN BY 8 HOUR INFUSION (MAX 16 HOURS) ON 5 CONSECUTIVE DAYS, COURSE 2
     Route: 042
  9. ISOTRETINOIN. [Suspect]
     Active Substance: ISOTRETINOIN
     Dosage: 160 MG/M2, OD ON 14 CONSECUTIVE DAYS
     Route: 065
  10. ISOTRETINOIN. [Suspect]
     Active Substance: ISOTRETINOIN
     Dosage: 160 MG/M2, OD ON 14 CONSECUTIVE DAYS
     Route: 065
  11. SARGRAMOSTIM [Suspect]
     Active Substance: SARGRAMOSTIM
     Indication: NEUROBLASTOMA
     Dosage: 250 MICROGRAM/SQ. METER, OD ON 14 CONSECUTIVE DAYS BY THE SC ROUTE OD (COURSE 5)
     Route: 058
  12. SARGRAMOSTIM [Suspect]
     Active Substance: SARGRAMOSTIM
     Dosage: 250 MICROGRAM/SQ. METER, OD ON 14 CONSECUTIVE DAYS BY THE SC ROUTE OD (COURSE 3)
     Route: 058
  13. QARZIBA [Suspect]
     Active Substance: DINUTUXIMAB BETA
     Dosage: 20 MG/M2 GIVEN BY 8 HOUR INFUSION (MAX 16 HOURS) ON 5 CONSECUTIVE DAYS, COURSE 5
     Route: 042
  14. INTERLEUKIN?2 [Suspect]
     Active Substance: ALDESLEUKIN
     Indication: NEUROBLASTOMA
     Dosage: 4.5 X 10E6 IU/M2/DAY ON 5 CONSECUTIVE DAYS BY (IV) CONTINUOUS INFUSION IN WEEK 2 (COURSE 4)
     Route: 042
  15. QARZIBA [Suspect]
     Active Substance: DINUTUXIMAB BETA
     Indication: NEUROBLASTOMA
     Dosage: 20 MG/M2 GIVEN BY 8 HOUR INFUSION (MAX 16 HOURS) ON 5 CONSECUTIVE DAYS, COURSE 1
     Route: 042
  16. INTERLEUKIN?2 [Suspect]
     Active Substance: ALDESLEUKIN
     Dosage: 3.0 X 10E6 IU/M2/DAY ON 4 CONSECUTIVE DAYS BY IV CONTINUOUS INFUSION IN WEEK 1 (COURSE 2)
     Route: 042
  17. SARGRAMOSTIM [Suspect]
     Active Substance: SARGRAMOSTIM
     Dosage: 250 MICROGRAM/SQ. METER, OD ON 14 CONSECUTIVE DAYS BY THE SC ROUTE (COURSE 1) OD
     Route: 058

REACTIONS (4)
  - Toxicity to various agents [Unknown]
  - Pyrexia [Unknown]
  - Pain [Unknown]
  - Device related bacteraemia [Unknown]
